FAERS Safety Report 6126680-0 (Version None)
Quarter: 2009Q1

REPORT INFORMATION
  Report Type: 
  Country: None (occurrence: None)
  Receive Date: 20090320
  Receipt Date: 20090310
  Transmission Date: 20090719
  Serious: Yes (Hospitalization)
  Sender: FDA-Public Use
  Company Number: JP-PFIZER INC-2009180726

PATIENT

DRUGS (2)
  1. ORELOX [Suspect]
     Indication: BRONCHIOLITIS
     Dosage: UNK
     Route: 048
     Dates: start: 20090122, end: 20090128
  2. MUCOMYST [Suspect]
     Indication: BRONCHIOLITIS
     Dosage: UNK
     Route: 048
     Dates: start: 20090122, end: 20090128

REACTIONS (3)
  - ASTHENIA [None]
  - BRONCHIAL OBSTRUCTION [None]
  - VOMITING [None]
